FAERS Safety Report 21805651 (Version 2)
Quarter: 2023Q1

REPORT INFORMATION
  Report Type: Spontaneous
  Country: VN (occurrence: VN)
  Receive Date: 20230102
  Receipt Date: 20230106
  Transmission Date: 20230417
  Serious: Yes (Other)
  Sender: FDA-Public Use
  Company Number: VN-002147023-NVSC2022VN299332

PATIENT
  Age: 85 Year
  Sex: Female

DRUGS (1)
  1. ACLASTA [Suspect]
     Active Substance: ZOLEDRONIC ACID
     Indication: Product used for unknown indication
     Dosage: UNK
     Route: 042

REACTIONS (8)
  - Loss of consciousness [Recovered/Resolved]
  - Loss of consciousness [Unknown]
  - Psychotic disorder [Recovered/Resolved]
  - Psychotic disorder [Unknown]
  - Somnolence [Recovered/Resolved]
  - Somnolence [Unknown]
  - Pyrexia [Recovered/Resolved]
  - Pyrexia [Unknown]
